FAERS Safety Report 21482662 (Version 3)
Quarter: 2022Q4

REPORT INFORMATION
  Report Type: Spontaneous
  Country: US (occurrence: US)
  Receive Date: 20221020
  Receipt Date: 20221117
  Transmission Date: 20230112
  Serious: No
  Sender: FDA-Public Use
  Company Number: US-KYOWAKIRIN-2022BKK016231

PATIENT

DRUGS (1)
  1. CRYSVITA [Suspect]
     Active Substance: BUROSUMAB-TWZA
     Indication: Hereditary hypophosphataemic rickets
     Dosage: 10 MG, 1X/2 WEEKS
     Route: 058
     Dates: start: 20200313

REACTIONS (1)
  - Blood phosphorus decreased [Unknown]

NARRATIVE: CASE EVENT DATE: 20220406
